FAERS Safety Report 11688040 (Version 1)
Quarter: 2015Q4

REPORT INFORMATION
  Report Type: Spontaneous
  Country: US (occurrence: US)
  Receive Date: 20151030
  Receipt Date: 20151030
  Transmission Date: 20160304
  Serious: No
  Sender: FDA-Public Use
  Company Number: US-PFIZER INC-2015362291

PATIENT
  Age: 37 Year
  Sex: Female

DRUGS (4)
  1. EFFEXOR XR [Suspect]
     Active Substance: VENLAFAXINE HYDROCHLORIDE
     Indication: DEPRESSION
     Dosage: 75 MG, 2X/DAY (EVERY MORNING AND EVERY NIGHT)
     Route: 048
     Dates: start: 201305
  2. FIBER TABLET [Concomitant]
     Indication: CONSTIPATION
     Dosage: UNK, AS NEEDED
  3. EFFEXOR XR [Suspect]
     Active Substance: VENLAFAXINE HYDROCHLORIDE
     Indication: ANXIETY
     Dosage: 150 MG (2 CAPSULES OF 75MG), 2X/DAY (EVERY MORNING AND EVERY NIGHT)
     Route: 048
  4. MELATONIN [Concomitant]
     Active Substance: MELATONIN
     Indication: SLEEP DISORDER
     Dosage: 3MG SOFT GELS, AS NEEDED

REACTIONS (4)
  - Insomnia [Unknown]
  - Intentional product misuse [Recovered/Resolved]
  - Chest pain [Recovered/Resolved]
  - Overdose [Recovered/Resolved]

NARRATIVE: CASE EVENT DATE: 2013
